FAERS Safety Report 6125642-7 (Version None)
Quarter: 2009Q1

REPORT INFORMATION
  Report Type: 
  Country: None (occurrence: None)
  Receive Date: 20090317
  Receipt Date: 20090305
  Transmission Date: 20090719
  Serious: Yes (Hospitalization, Congenital Anomaly)
  Sender: FDA-Public Use
  Company Number: GXKR2009TR02854

PATIENT
  Sex: Female

DRUGS (2)
  1. DIAZEPAM [Suspect]
     Dosage: TRANSPLACENTAL
     Route: 064
  2. FLUOXETINE [Suspect]
     Dosage: TRANSPLACENTAL
     Route: 064

REACTIONS (13)
  - AGITATION NEONATAL [None]
  - CAESAREAN SECTION [None]
  - DRUG EXPOSURE VIA BREAST MILK [None]
  - DRUG WITHDRAWAL SYNDROME NEONATAL [None]
  - EYE MOVEMENT DISORDER [None]
  - FEEDING DISORDER NEONATAL [None]
  - HYPERTONIA NEONATAL [None]
  - MATERNAL DRUGS AFFECTING FOETUS [None]
  - MICROCEPHALY [None]
  - MILD MENTAL RETARDATION [None]
  - OCULOGYRIC CRISIS [None]
  - PSYCHOMOTOR HYPERACTIVITY [None]
  - VOMITING NEONATAL [None]
